FAERS Safety Report 4384693-3 (Version None)
Quarter: 2004Q2

REPORT INFORMATION
  Report Type: 
  Country: None (occurrence: None)
  Receive Date: 20040625
  Receipt Date: 20040616
  Transmission Date: 20050107
  Serious: Yes (Death, Hospitalization)
  Sender: FDA-Public Use
  Company Number: PHRM2004FR02130

PATIENT
  Age: 76 Year
  Sex: Male
  Weight: 65 kg

DRUGS (4)
  1. CIBADREX [Suspect]
     Route: 048
     Dates: end: 20040222
  2. MOPRAL [Suspect]
     Route: 048
     Dates: end: 20040222
  3. LEGALON [Suspect]
     Dosage: UNK, PRN
     Route: 048
     Dates: end: 20040222
  4. FENOFIBRATE GNR [Suspect]
     Route: 048
     Dates: end: 20040222

REACTIONS (20)
  - ABDOMINAL PAIN [None]
  - ALANINE AMINOTRANSFERASE INCREASED [None]
  - ASCITES [None]
  - ASCITES INFECTION [None]
  - BLOOD AMYLASE INCREASED [None]
  - BLOOD BILIRUBIN INCREASED [None]
  - BLOOD CREATINE PHOSPHOKINASE INCREASED [None]
  - CHOLELITHIASIS [None]
  - GAMMA-GLUTAMYLTRANSFERASE INCREASED [None]
  - GENERAL PHYSICAL HEALTH DETERIORATION [None]
  - GENERALISED OEDEMA [None]
  - LIPASE INCREASED [None]
  - MULTI-ORGAN FAILURE [None]
  - MYOGLOBIN BLOOD INCREASED [None]
  - PANCREATIC FISTULA [None]
  - PANCREATITIS NECROTISING [None]
  - PLEURAL EFFUSION [None]
  - RENAL FAILURE ACUTE [None]
  - RESPIRATORY DISTRESS [None]
  - SEPTIC SHOCK [None]
